FAERS Safety Report 9346435 (Version 2)
Quarter: 2013Q3

REPORT INFORMATION
  Report Type: Spontaneous
  Country: US (occurrence: US)
  Receive Date: 20130613
  Receipt Date: 20130717
  Transmission Date: 20140515
  Serious: Yes (Life-Threatening, Hospitalization)
  Sender: FDA-Public Use
  Company Number: US-009507513-1306USA001803

PATIENT
  Age: 23 Year
  Sex: Female

DRUGS (1)
  1. NEXPLANON [Suspect]
     Indication: CONTRACEPTION
     Dosage: 68 MG/1 ROD INSERTED
     Route: 059
     Dates: start: 20130517, end: 20130522

REACTIONS (2)
  - Injection site infection [Recovering/Resolving]
  - Implant site discolouration [Recovering/Resolving]
